FAERS Safety Report 16682331 (Version 1)
Quarter: 2019Q3

REPORT INFORMATION
  Report Type: Report from Study
  Country: JP (occurrence: JP)
  Receive Date: 20190808
  Receipt Date: 20190808
  Transmission Date: 20191004
  Serious: Yes (Other)
  Sender: FDA-Public Use
  Company Number: JP-PFIZER INC-2019339157

PATIENT
  Age: 62 Year
  Sex: Male

DRUGS (3)
  1. CISPLATIN. [Suspect]
     Active Substance: CISPLATIN
     Indication: EXTRAMAMMARY PAGET^S DISEASE
     Dosage: DOSING SCHEDULE WAS 2 WEEKS ON/2 WEEKS OFF
     Route: 065
  2. EPIRUBICIN HCL [Suspect]
     Active Substance: EPIRUBICIN HYDROCHLORIDE
     Indication: EXTRAMAMMARY PAGET^S DISEASE
     Dosage: DOSING SCHEDULE WAS 2 WEEKS ON/2 WEEKS OFF
     Route: 065
  3. PACLITAXEL. [Suspect]
     Active Substance: PACLITAXEL
     Indication: EXTRAMAMMARY PAGET^S DISEASE
     Dosage: DOSING SCHEDULE WAS 2 WEEKS ON/2 WEEKS OFF
     Route: 065

REACTIONS (1)
  - Haematotoxicity [Unknown]
